FAERS Safety Report 9650854 (Version 2)
Quarter: 2013Q4

REPORT INFORMATION
  Report Type: Report from Study
  Country: EG (occurrence: EG)
  Receive Date: 20131029
  Receipt Date: 20131206
  Transmission Date: 20140711
  Serious: Yes (Other)
  Sender: FDA-Public Use
  Company Number: EG-ROCHE-1293973

PATIENT
  Age: 47 Year
  Sex: Male
  Weight: 90 kg

DRUGS (6)
  1. PEGASYS [Suspect]
     Indication: HEPATITIS VIRAL
     Route: 058
     Dates: start: 20131009
  2. COPEGUS [Suspect]
     Indication: HEPATITIS VIRAL
     Route: 048
     Dates: start: 20131009
  3. GALVUSMET [Concomitant]
     Indication: DIABETES MELLITUS
     Route: 048
     Dates: start: 20130521
  4. ATACAND [Concomitant]
     Indication: HYPERTENSION
     Route: 048
     Dates: start: 20130521
  5. NATRILIX [Concomitant]
     Indication: POLYURIA
     Dosage: NATRILIX SR
     Route: 048
     Dates: start: 20130521
  6. PROCORALAN [Concomitant]
     Indication: ARRHYTHMIA
     Route: 048
     Dates: start: 20130521

REACTIONS (7)
  - Chest discomfort [Not Recovered/Not Resolved]
  - Dyspnoea [Not Recovered/Not Resolved]
  - Fatigue [Not Recovered/Not Resolved]
  - Cough [Unknown]
  - Malaise [Unknown]
  - Pyrexia [Recovered/Resolved]
  - Hypersensitivity [Not Recovered/Not Resolved]
